FAERS Safety Report 5032283-1 (Version None)
Quarter: 2006Q2

REPORT INFORMATION
  Report Type: 
  Country: None (occurrence: None)
  Receive Date: 20060619
  Receipt Date: 20060609
  Transmission Date: 20061013
  Serious: Yes (Hospitalization)
  Sender: FDA-Public Use
  Company Number: 2006-02330

PATIENT
  Age: 48 Year
  Sex: Female
  Weight: 50.8 kg

DRUGS (8)
  1. OXYTROL [Suspect]
     Indication: BLADDER SPASM
     Dosage: SEE IMAGE
     Route: 062
     Dates: start: 20030101, end: 20060602
  2. OXYTROL [Suspect]
     Indication: BLADDER SPASM
     Dosage: SEE IMAGE
     Route: 062
     Dates: start: 20060602
  3. PREVACID [Concomitant]
  4. BACLOFEN [Concomitant]
  5. UNSPEC. ASTHMA MEDICATION [Concomitant]
  6. SINGULAIR [Concomitant]
  7. VALIUM [Concomitant]
  8. TYENOL (PARACETAMOL) [Concomitant]

REACTIONS (8)
  - ABDOMINAL PAIN [None]
  - BLADDER PAIN [None]
  - BLADDER SPASM [None]
  - CALCULUS URETERIC [None]
  - CONSTIPATION [None]
  - DECREASED ACTIVITY [None]
  - DRUG INEFFECTIVE [None]
  - NEPHROLITHIASIS [None]
